FAERS Safety Report 10153219 (Version 2)
Quarter: 2014Q2

REPORT INFORMATION
  Report Type: Report from Study
  Country: US (occurrence: US)
  Receive Date: 20140505
  Receipt Date: 20140515
  Transmission Date: 20141212
  Serious: Yes (Hospitalization, Other)
  Sender: FDA-Public Use
  Company Number: US-BAYER-2014-064842

PATIENT
  Age: 63 Year
  Sex: Male
  Weight: 112.2 kg

DRUGS (2)
  1. SORAFENIB (RAF KINASE INHIBITOR) [Suspect]
     Indication: RECTAL CANCER METASTATIC
     Dosage: DAILY DOSE 200 MG
     Route: 048
     Dates: start: 20130828, end: 20140319
  2. XELODA [Suspect]
     Indication: COLORECTAL CANCER METASTATIC
     Dosage: DAILY DOSE 1650 MG
     Route: 048
     Dates: start: 20130828, end: 20140319

REACTIONS (7)
  - Abdominal pain [None]
  - Intestinal perforation [None]
  - Splenic infarction [None]
  - Hepatic cirrhosis [None]
  - Paraspinal abscess [None]
  - Haematoma infection [None]
  - Renal failure acute [None]
